FAERS Safety Report 11472555 (Version 1)
Quarter: 2015Q3

REPORT INFORMATION
  Report Type: Spontaneous
  Country: US (occurrence: US)
  Receive Date: 20150908
  Receipt Date: 20150908
  Transmission Date: 20151125
  Serious: No
  Sender: FDA-Public Use
  Company Number: US-GLAXOSMITHKLINE-US2015124688

PATIENT
  Sex: Female

DRUGS (3)
  1. SALBUTAMOL SULPHATE INHALATIONAL POWDER [Suspect]
     Active Substance: ALBUTEROL SULFATE
     Dosage: 1 PUFF(S), PRN
     Route: 055
     Dates: start: 2008
  2. NEBULIZED ALBUTEROL [Concomitant]
     Active Substance: ALBUTEROL
  3. ADVAIR DISKUS [Suspect]
     Active Substance: FLUTICASONE PROPIONATE\SALMETEROL XINAFOATE
     Indication: CHRONIC OBSTRUCTIVE PULMONARY DISEASE
     Dosage: 1 PUFF(S), BID
     Route: 055
     Dates: start: 2012

REACTIONS (8)
  - Palpitations [Recovered/Resolved]
  - Panic reaction [Unknown]
  - Pyrexia [Recovered/Resolved]
  - Influenza [Recovered/Resolved]
  - Cough [Recovered/Resolved]
  - Dyspnoea [Unknown]
  - Ill-defined disorder [Recovered/Resolved]
  - Drug ineffective [Not Recovered/Not Resolved]

NARRATIVE: CASE EVENT DATE: 2008
